FAERS Safety Report 8629620 (Version 2)
Quarter: 2013Q1

REPORT INFORMATION
  Report Type: Spontaneous
  Country: KR (occurrence: None)
  Receive Date: 20120607
  Receipt Date: 20121210
  Transmission Date: 20140127
  Serious: Yes (Other)
  Sender: FDA-Public Use
  Company Number: DSA_57631_2012

PATIENT
  Sex: 0

DRUGS (3)
  1. FLUOROURACIL [Suspect]
     Indication: METASTATIC GASTRIC CANCER
     Route: 042
  2. LEUCOVORIN /00566701/ (LEUCOVORIN-FOLINIC ACID) [Suspect]
     Indication: METASTATIC GASTRIC CANCER
     Route: 042
  3. IRINOTECAN HYDROCHLORIDE [Suspect]
     Indication: METASTATIC GASTRIC CANCER
     Route: 042

REACTIONS (1)
  - Eastern Cooperative Oncology Group performance status worsened [None]
